FAERS Safety Report 7402828 (Version 5)
Quarter: 2013Q2

REPORT INFORMATION
  Report Type: Report from Study
  Country: FR (occurrence: FR)
  Receive Date: 20100528
  Receipt Date: 20130626
  Transmission Date: 20140414
  Serious: Yes (Hospitalization)
  Sender: FDA-Public Use
  Company Number: PHHY2010FR32868

PATIENT
  Age: 68 Year
  Sex: Male

DRUGS (10)
  1. STI571 [Suspect]
     Indication: CHRONIC MYELOID LEUKAEMIA
     Dosage: 400 MG, QD
     Dates: start: 20051022, end: 20091020
  2. STI571 [Suspect]
     Dosage: UNK UKN, UNK
     Dates: start: 20100105
  3. AMAREL [Suspect]
     Indication: TYPE 2 DIABETES MELLITUS
  4. ATENOLOL [Concomitant]
  5. ZOFENIL [Concomitant]
  6. PLAVIX [Concomitant]
  7. TAHOR [Concomitant]
  8. ESIDREX [Concomitant]
     Dosage: UNK UKN, UNK
  9. ACTOS [Concomitant]
     Dosage: UNK
  10. IMODIUM [Concomitant]
     Dosage: UNK

REACTIONS (12)
  - Cholestasis [Recovered/Resolved]
  - Renal failure [Recovered/Resolved]
  - Anaemia [Recovered/Resolved]
  - Bronchopneumopathy [Recovered/Resolved]
  - Blood glucose increased [Recovered/Resolved]
  - Inflammation [Recovered/Resolved]
  - Productive cough [Recovered/Resolved]
  - Cough [Recovered/Resolved]
  - Pyrexia [Recovered/Resolved]
  - Rales [Recovered/Resolved]
  - Bacillus test positive [Recovered/Resolved]
  - Citrobacter test positive [Recovered/Resolved]
